FAERS Safety Report 8883054 (Version 2)
Quarter: 2012Q4

REPORT INFORMATION
  Report Type: Report from Study
  Country: CA (occurrence: CA)
  Receive Date: 20121104
  Receipt Date: 20121219
  Transmission Date: 20130627
  Serious: Yes (Hospitalization, Other)
  Sender: FDA-Public Use
  Company Number: CA-JNJFOC-20121009751

PATIENT
  Age: 38 Year
  Sex: Female
  Weight: 56.25 kg

DRUGS (5)
  1. REMICADE [Suspect]
     Indication: ANKYLOSING SPONDYLITIS
     Route: 042
     Dates: start: 20101021
  2. REMICADE [Suspect]
     Indication: ANKYLOSING SPONDYLITIS
     Route: 042
     Dates: start: 2012
  3. REMICADE [Suspect]
     Indication: CROHN^S DISEASE
     Route: 042
     Dates: start: 2012
  4. REMICADE [Suspect]
     Indication: CROHN^S DISEASE
     Route: 042
     Dates: start: 20101021
  5. UNKNOWN MEDICATION [Concomitant]
     Route: 065

REACTIONS (11)
  - Endometritis [Not Recovered/Not Resolved]
  - Uterine injury [Not Recovered/Not Resolved]
  - Pain [Not Recovered/Not Resolved]
  - Crohn^s disease [Unknown]
  - Weight decreased [Unknown]
  - Blood immunoglobulin E decreased [Unknown]
  - Psoriasis [Unknown]
  - Medical device complication [Not Recovered/Not Resolved]
  - Vaginal haemorrhage [Not Recovered/Not Resolved]
  - Fatigue [Unknown]
  - Muscle spasms [Unknown]
